FAERS Safety Report 21203132 (Version 6)
Quarter: 2023Q4

REPORT INFORMATION
  Report Type: Report from Study
  Country: US (occurrence: US)
  Receive Date: 20220811
  Receipt Date: 20231203
  Transmission Date: 20240110
  Serious: Yes (Hospitalization, Other)
  Sender: FDA-Public Use
  Company Number: US-SHIRE-US202024115

PATIENT
  Sex: Female

DRUGS (1)
  1. HUMAN IMMUNOGLOBULIN G\HYALURONIDASE RECOMBINANT HUMAN [Suspect]
     Active Substance: HUMAN IMMUNOGLOBULIN G\HYALURONIDASE (HUMAN RECOMBINANT)
     Indication: Primary immunodeficiency syndrome
     Dosage: 300 MILLILITER, Q3WEEKS
     Route: 065

REACTIONS (11)
  - Septic shock [Unknown]
  - Urinary tract infection [Unknown]
  - Blood pressure decreased [Unknown]
  - Pyrexia [Unknown]
  - Interstitial lung disease [Unknown]
  - Nephrolithiasis [Unknown]
  - Lymphoma [Not Recovered/Not Resolved]
  - Renal necrosis [Unknown]
  - Brain fog [Unknown]
  - Lymphoedema [Unknown]
  - Myalgia [Unknown]
